FAERS Safety Report 5350846-0 (Version None)
Quarter: 2007Q2

REPORT INFORMATION
  Report Type: 
  Country: None (occurrence: None)
  Receive Date: 20070608
  Receipt Date: 20070605
  Transmission Date: 20071010
  Serious: Yes (Hospitalization)
  Sender: FDA-Public Use
  Company Number: A0654287A

PATIENT
  Age: 88 Year
  Sex: Male

DRUGS (10)
  1. AVODART [Suspect]
     Indication: BENIGN PROSTATIC HYPERPLASIA
     Dosage: .5MG PER DAY
     Route: 048
     Dates: start: 20070411
  2. ZOCOR [Concomitant]
  3. NAMENDA [Concomitant]
  4. ZETIA [Concomitant]
  5. GLUCOTROL [Concomitant]
  6. PLAVIX [Concomitant]
  7. ALDACTONE [Concomitant]
  8. ECOTRIN [Concomitant]
  9. LEXAPRO [Concomitant]
  10. LEVOTHYROXINE SODIUM [Concomitant]

REACTIONS (1)
  - CEREBROVASCULAR ACCIDENT [None]
